FAERS Safety Report 8247497-7 (Version None)
Quarter: 2012Q1

REPORT INFORMATION
  Report Type: 
  Country: None (occurrence: None)
  Receive Date: 20120327
  Receipt Date: 20120316
  Transmission Date: 20120608
  Serious: Yes (Hospitalization, Other)
  Sender: FDA-Public Use
  Company Number: 2009JP005038

PATIENT
  Age: 38 Year
  Sex: Female
  Weight: 52.4 kg

DRUGS (19)
  1. ULGUT (BENEXATE HYDROCHLORIDE) CAPSULE [Concomitant]
  2. BETAMETHASONE [Suspect]
     Indication: LUPUS NEPHRITIS
     Dosage: SEE IMAGE
     Route: 048
     Dates: start: 20080521, end: 20080604
  3. BETAMETHASONE [Suspect]
     Indication: LUPUS NEPHRITIS
     Dosage: SEE IMAGE
     Route: 048
     Dates: start: 20090513, end: 20090623
  4. BETAMETHASONE [Suspect]
     Indication: LUPUS NEPHRITIS
     Dosage: SEE IMAGE
     Route: 048
     Dates: start: 20080904, end: 20081001
  5. BETAMETHASONE [Suspect]
     Indication: LUPUS NEPHRITIS
     Dosage: SEE IMAGE
     Route: 048
     Dates: start: 20090101, end: 20090512
  6. BETAMETHASONE [Suspect]
     Indication: LUPUS NEPHRITIS
     Dosage: SEE IMAGE
     Route: 048
     Dates: start: 20080703, end: 20080903
  7. BETAMETHASONE [Suspect]
     Indication: LUPUS NEPHRITIS
     Dosage: SEE IMAGE
     Route: 048
     Dates: start: 20080605, end: 20080702
  8. BETAMETHASONE [Suspect]
     Indication: LUPUS NEPHRITIS
     Dosage: SEE IMAGE
     Route: 048
     Dates: start: 20090624, end: 20091006
  9. BETAMETHASONE [Suspect]
     Indication: LUPUS NEPHRITIS
     Dosage: SEE IMAGE
     Route: 048
     Dates: start: 20091007, end: 20100309
  10. BETAMETHASONE [Suspect]
     Indication: LUPUS NEPHRITIS
     Dosage: SEE IMAGE
     Route: 048
     Dates: start: 20081002, end: 20081231
  11. BETAMETHASONE [Suspect]
     Indication: LUPUS NEPHRITIS
     Dosage: SEE IMAGE
     Route: 048
     Dates: start: 20100310, end: 20100601
  12. ZANTAC [Concomitant]
  13. COMELIAN (DILAZEP DIHYDROCHLORIDE) [Concomitant]
  14. TACROLIMUS [Suspect]
     Indication: LUPUS NEPHRITIS
     Dosage: 1.5 MG,/D, ORAL
     Route: 048
     Dates: start: 20071031
  15. ISODINE (POVIDONE-IODINE) MOUTH WASH [Concomitant]
  16. ACINON (NIZATIDINE) CAPSULE [Concomitant]
  17. SLOW-FE (FERROUS SULFATE) [Concomitant]
  18. ONEALFA (ALFACALCIDOL) [Concomitant]
  19. PREDNISOLONE [Concomitant]

REACTIONS (6)
  - CONDITION AGGRAVATED [None]
  - MALAISE [None]
  - NEPHRITIS [None]
  - DIARRHOEA [None]
  - CATARACT [None]
  - ANAEMIA [None]
